FAERS Safety Report 17576222 (Version 2)
Quarter: 2020Q2

REPORT INFORMATION
  Report Type: Spontaneous
  Country: US (occurrence: US)
  Receive Date: 20200324
  Receipt Date: 20200416
  Transmission Date: 20200713
  Serious: Yes (Other)
  Sender: FDA-Public Use
  Company Number: US-BAYER-2020-049629

PATIENT
  Age: 50 Year
  Sex: Male

DRUGS (2)
  1. ALKA-SELTZER PLUS MAXIMUM STRENGTH DAY AND NIGHT COLD AND FLU POWERMAX GELS [Suspect]
     Active Substance: ACETAMINOPHEN\DEXTROMETHORPHAN HYDROBROMIDE\DOXYLAMINE SUCCINATE\PHENYLEPHRINE HYDROCHLORIDE
     Indication: HYPERSENSITIVITY
     Dosage: 2 DF, Q4HR
     Route: 048
     Dates: start: 20200320, end: 20200321
  2. ALKA-SELTZER PLUS MAXIMUM STRENGTH DAY AND NIGHT COLD AND FLU POWERMAX GELS [Suspect]
     Active Substance: ACETAMINOPHEN\DEXTROMETHORPHAN HYDROBROMIDE\DOXYLAMINE SUCCINATE\PHENYLEPHRINE HYDROCHLORIDE
     Indication: NASOPHARYNGITIS

REACTIONS (7)
  - Fear of death [None]
  - Incorrect dose administered [None]
  - Choking [Recovered/Resolved]
  - Foreign body in throat [Recovered/Resolved]
  - Hyperhidrosis [None]
  - Nervousness [None]
  - Panic reaction [None]

NARRATIVE: CASE EVENT DATE: 20200321
